FAERS Safety Report 22092761 (Version 1)
Quarter: 2023Q1

REPORT INFORMATION
  Report Type: Other
  Country: US (occurrence: None)
  Receive Date: 20230314
  Receipt Date: 20230314
  Transmission Date: 20230417
  Serious: Yes (Hospitalization)
  Sender: FDA-Public Use
  Company Number: US-ROCHE-2453911

PATIENT
  Age: 53 Year
  Sex: Male
  Weight: 99.880 kg

DRUGS (9)
  1. OCREVUS [Suspect]
     Active Substance: OCRELIZUMAB
     Indication: Primary progressive multiple sclerosis
     Dosage: DATE OF TREATMENT: 21/AUG/2019, 19/FEB/2019, 06/AUG/2019
     Route: 065
     Dates: start: 20180807
  2. TRAMADOL [Concomitant]
     Active Substance: TRAMADOL
  3. IBUPROFEN [Concomitant]
     Active Substance: IBUPROFEN
  4. FLONASE [Concomitant]
     Active Substance: FLUTICASONE PROPIONATE
  5. OXYBUTYNIN [Concomitant]
     Active Substance: OXYBUTYNIN
  6. OMEPRAZOLE [Concomitant]
     Active Substance: OMEPRAZOLE
  7. BACLOFEN [Concomitant]
     Active Substance: BACLOFEN
  8. TIZANIDINE [Concomitant]
     Active Substance: TIZANIDINE
  9. BETAMETHASONE [Concomitant]
     Active Substance: BETAMETHASONE

REACTIONS (3)
  - Fall [Unknown]
  - Urinary tract infection [Recovered/Resolved]
  - Pyrexia [Recovered/Resolved]

NARRATIVE: CASE EVENT DATE: 20191022
